FAERS Safety Report 10998066 (Version 1)
Quarter: 2015Q2

REPORT INFORMATION
  Report Type: Spontaneous
  Country: US (occurrence: None)
  Receive Date: 20150407
  Receipt Date: 20150407
  Transmission Date: 20150821
  Serious: Yes (Other)
  Sender: FDA-Public Use
  Company Number: None

PATIENT
  Age: 77 Year
  Sex: Male

DRUGS (26)
  1. I-CAPS [Concomitant]
  2. METRONIDAZOLE TOPICAL CREAM [Concomitant]
  3. CETIRIZINE [Concomitant]
     Active Substance: CETIRIZINE HYDROCHLORIDE
  4. TAMSULOSIN [Concomitant]
     Active Substance: TAMSULOSIN
  5. VITAMIN B6 [Concomitant]
     Active Substance: PYRIDOXINE HYDROCHLORIDE
  6. VITAMIN B12 [Concomitant]
     Active Substance: CYANOCOBALAMIN
  7. RIVASTIGMINE TARTRATE. [Suspect]
     Active Substance: RIVASTIGMINE TARTRATE
     Indication: AMNESIA
     Dosage: 2 CAPS PER DAY
     Route: 048
     Dates: start: 20150315, end: 20150315
  8. PROSCAR [Concomitant]
     Active Substance: FINASTERIDE
  9. FOLIC ACID. [Concomitant]
     Active Substance: FOLIC ACID
  10. FOLIC ACID. [Concomitant]
     Active Substance: FOLIC ACID
  11. TAMSULOSIN [Concomitant]
     Active Substance: TAMSULOSIN
  12. PRIMIDONE. [Concomitant]
     Active Substance: PRIMIDONE
  13. MULTIVITAMIN WITH MINERALS (CENTRUM SILVER) [Concomitant]
  14. METFORMIN [Concomitant]
     Active Substance: METFORMIN HYDROCHLORIDE
  15. ZETIA [Concomitant]
     Active Substance: EZETIMIBE
  16. ZOCOR [Concomitant]
     Active Substance: SIMVASTATIN
  17. EZETIMIBE-SIMVASTATIN [Concomitant]
  18. LOSARTAN [Concomitant]
     Active Substance: LOSARTAN
  19. METOPROLOL [Concomitant]
     Active Substance: METOPROLOL
  20. FISH OIL [Concomitant]
     Active Substance: FISH OIL
  21. FLAXSEED [Concomitant]
     Active Substance: FLAX SEED
  22. OMEGA-3 ACIDS [Concomitant]
     Active Substance: OMEGA-3 FATTY ACIDS
  23. DIOVAN [Concomitant]
     Active Substance: VALSARTAN
  24. CENTRUM SILVER [Concomitant]
     Active Substance: VITAMINS
  25. VITAMIN D3 [Concomitant]
     Active Substance: CHOLECALCIFEROL
  26. NEXIUM [Concomitant]
     Active Substance: ESOMEPRAZOLE MAGNESIUM

REACTIONS (8)
  - Asthenia [None]
  - Disorientation [None]
  - Nausea [None]
  - Blood pressure increased [None]
  - Decreased activity [None]
  - Heart rate decreased [None]
  - Vomiting [None]
  - Dizziness [None]

NARRATIVE: CASE EVENT DATE: 20150315
